FAERS Safety Report 9377538 (Version 2)
Quarter: 2013Q3

REPORT INFORMATION
  Report Type: Spontaneous
  Country: ES (occurrence: ES)
  Receive Date: 20130701
  Receipt Date: 20130716
  Transmission Date: 20140515
  Serious: Yes (Hospitalization, Other)
  Sender: FDA-Public Use
  Company Number: ES-UCBSA-090008

PATIENT
  Age: 26 Year
  Sex: Male

DRUGS (5)
  1. KEPPRA [Suspect]
     Indication: CONVULSION
     Dosage: 100 MG/ML CONCENTRATE FOR SOLUTION FOR PERFUSION; 2 G/DAY
     Route: 042
     Dates: start: 20121217, end: 20121228
  2. SOLTRIM [Suspect]
     Indication: PYREXIA
     Route: 042
     Dates: start: 20121219, end: 20121226
  3. COLISTIMETHATE SODIUM [Concomitant]
     Route: 042
     Dates: start: 20121211, end: 20121215
  4. PANTOPRAZOLE [Concomitant]
     Indication: GASTROINTESTINAL ULCER
     Route: 042
     Dates: start: 20121118
  5. NOLOTIL [Concomitant]
     Indication: PAIN
     Route: 042
     Dates: start: 20121211

REACTIONS (1)
  - Agranulocytosis [Recovered/Resolved]
